FAERS Safety Report 10031995 (Version 2)
Quarter: 2014Q2

REPORT INFORMATION
  Report Type: Spontaneous
  Country: US (occurrence: US)
  Receive Date: 20140324
  Receipt Date: 20140408
  Transmission Date: 20141212
  Serious: No
  Sender: FDA-Public Use
  Company Number: US-PFIZER INC-2014080577

PATIENT
  Age: 49 Year
  Sex: Female
  Weight: 81.63 kg

DRUGS (3)
  1. NEURONTIN [Suspect]
     Indication: NEUROPATHY PERIPHERAL
     Dosage: 200 MG, 3X/DAY
  2. NEURONTIN [Suspect]
     Dosage: 800 MG, 3X/DAY
     Dates: start: 2012
  3. NEURONTIN [Suspect]
     Dosage: 800 MG, 4X/DAY
     Dates: end: 2013

REACTIONS (2)
  - Intentional product misuse [Unknown]
  - Hepatic enzyme increased [Unknown]
